FAERS Safety Report 8801614 (Version 1)
Quarter: 2012Q4

REPORT INFORMATION
  Report Type: 
  Country: US (occurrence: US)
  Receive Date: 20120921
  Receipt Date: 20120921
  Transmission Date: 20130627
  Serious: No
  Sender: FDA-Public Use
  Company Number: US-PFIZER INC-2012233766

PATIENT
  Age: 77 Year
  Sex: Female
  Weight: 76.64 kg

DRUGS (4)
  1. CELEBREX [Suspect]
     Indication: ARTHRITIS
     Dosage: 200 mg, daily
     Route: 048
     Dates: start: 2012, end: 201209
  2. MELOXICAM [Suspect]
     Indication: BACK PAIN
     Dosage: 15 mg, UNK
  3. MELOXICAM [Suspect]
     Indication: PAIN IN EXTREMITY
  4. MELOXICAM [Suspect]
     Indication: ARTHRALGIA

REACTIONS (2)
  - Drug ineffective [Unknown]
  - Therapeutic response unexpected [Unknown]
